FAERS Safety Report 8585030 (Version 3)
Quarter: 2012Q4

REPORT INFORMATION
  Report Type: 
  Country: US (occurrence: US)
  Receive Date: 20120530
  Receipt Date: 20121210
  Transmission Date: 20130627
  Serious: No
  Sender: FDA-Public Use
  Company Number: US-PFIZER INC-2012124959

PATIENT
  Age: 32 Year
  Sex: Female

DRUGS (1)
  1. FLAGYL [Suspect]
     Indication: BACTERIAL VAGINOSIS
     Dosage: 500 mg, 2x/day
     Route: 048
     Dates: start: 20111101, end: 20111104

REACTIONS (4)
  - Nausea [Recovered/Resolved]
  - Headache [Unknown]
  - Dizziness [Unknown]
  - Vomiting [Unknown]
